FAERS Safety Report 14263836 (Version 9)
Quarter: 2018Q2

REPORT INFORMATION
  Report Type: Spontaneous
  Country: US (occurrence: US)
  Receive Date: 20171208
  Receipt Date: 20180626
  Transmission Date: 20180711
  Serious: Yes (Other)
  Sender: FDA-Public Use
  Company Number: PHEH2017US039765

PATIENT
  Age: 28 Year
  Sex: Female

DRUGS (3)
  1. ONDANSETRONE RANBAXY [Suspect]
     Active Substance: ONDANSETRON HYDROCHLORIDE
     Indication: VOMITING IN PREGNANCY
     Dosage: 4 MG, Q8H (AS NEEDED)
     Route: 065
     Dates: start: 20140317
  2. ZOFRAN [Suspect]
     Active Substance: ONDANSETRON HYDROCHLORIDE
     Indication: VOMITING IN PREGNANCY
     Dosage: 1 DF, Q8H (AS NEEDED)
     Route: 048
     Dates: start: 20140328, end: 20141120
  3. ONDANSETRON [Suspect]
     Active Substance: ONDANSETRON
     Indication: VOMITING IN PREGNANCY
     Dosage: 4 MG, Q8H (AS NEEDED)
     Route: 065
     Dates: start: 20140317

REACTIONS (9)
  - Product use in unapproved indication [Unknown]
  - Injury [Unknown]
  - Vaginal haemorrhage [Unknown]
  - Anxiety [Not Recovered/Not Resolved]
  - Adjustment disorder [Not Recovered/Not Resolved]
  - Maternal exposure during pregnancy [Unknown]
  - Depressed mood [Not Recovered/Not Resolved]
  - Premature delivery [Unknown]
  - Vaginal discharge [Unknown]

NARRATIVE: CASE EVENT DATE: 20141009
